FAERS Safety Report 8834675 (Version 3)
Quarter: 2013Q1

REPORT INFORMATION
  Report Type: Report from Study
  Country: DE (occurrence: DE)
  Receive Date: 20121010
  Receipt Date: 20130225
  Transmission Date: 20140127
  Serious: Yes (Hospitalization)
  Sender: FDA-Public Use
  Company Number: PHHY2012DE088854

PATIENT
  Sex: Female

DRUGS (11)
  1. AMN107 [Suspect]
     Indication: CHRONIC MYELOID LEUKAEMIA
     Dosage: 600 MG, DAILY
     Dates: start: 20120813
  2. TORASEMIDE [Concomitant]
     Indication: OEDEMA
     Dosage: 20 MG, PER DAY
     Dates: start: 20111123
  3. TORASEMIDE [Concomitant]
     Indication: CARDIOMYOPATHY
  4. ASS [Concomitant]
     Indication: CORONARY ARTERY DISEASE
     Dosage: 100 MG, PER DAY
     Dates: start: 2010
  5. METOPROLOL [Concomitant]
     Indication: HYPERTENSION
     Dosage: 47.5 MG, PER DAY
     Dates: start: 2010
  6. METOPROLOL [Concomitant]
     Indication: CORONARY ARTERY DISEASE
  7. RAMIPRIL [Concomitant]
     Indication: HYPERTENSION
     Dosage: 5 MG, PER DAY
     Dates: start: 2010
  8. RAMIPRIL [Concomitant]
     Indication: CARDIOMYOPATHY
  9. L-THYROXIN [Concomitant]
     Indication: HYPOTHYROIDISM
     Dosage: 100 UG, PER DAY
     Dates: start: 2010
  10. SIMVASTATIN [Concomitant]
     Indication: DYSLIPIDAEMIA
     Dosage: 40 MG, PER DAY
     Dates: start: 2010
  11. ALLOPURINOL [Concomitant]
     Indication: HYPERURICAEMIA
     Dosage: 100 MG, PER DAY
     Dates: start: 2010

REACTIONS (2)
  - Vomiting [Recovered/Resolved]
  - Dehydration [Recovered/Resolved]
